FAERS Safety Report 17728586 (Version 2)
Quarter: 2021Q4

REPORT INFORMATION
  Report Type: Report from Study
  Country: BE (occurrence: BE)
  Receive Date: 20200430
  Receipt Date: 20211115
  Transmission Date: 20220303
  Serious: Yes (Life-Threatening, Hospitalization, Other)
  Sender: FDA-Public Use
  Company Number: BE-JNJFOC-20190515829

PATIENT
  Age: 68 Year
  Sex: Male
  Weight: 180 kg

DRUGS (2)
  1. IMBRUVICA [Suspect]
     Active Substance: IBRUTINIB
     Indication: Mantle cell lymphoma recurrent
     Route: 048
     Dates: start: 20150201
  2. IMBRUVICA [Suspect]
     Active Substance: IBRUTINIB
     Route: 048
     Dates: start: 20151110, end: 20190606

REACTIONS (2)
  - Lung neoplasm malignant [Recovering/Resolving]
  - Lung lobectomy [Recovered/Resolved]

NARRATIVE: CASE EVENT DATE: 20190425
